FAERS Safety Report 14922339 (Version 3)
Quarter: 2019Q2

REPORT INFORMATION
  Report Type: Report from Study
  Country: FR (occurrence: FR)
  Receive Date: 20180522
  Receipt Date: 20190517
  Transmission Date: 20190711
  Serious: Yes (Hospitalization)
  Sender: FDA-Public Use
  Company Number: FR-ROCHE-2125160

PATIENT
  Age: 70 Year
  Sex: Male
  Weight: 67 kg

DRUGS (10)
  1. DEXAMETHASONE. [Concomitant]
     Active Substance: DEXAMETHASONE
     Indication: MANTLE CELL LYMPHOMA
     Route: 065
     Dates: start: 20170413, end: 20170811
  2. CYTARABINE. [Concomitant]
     Active Substance: CYTARABINE
     Indication: MANTLE CELL LYMPHOMA
     Route: 065
     Dates: start: 20170413, end: 20170811
  3. DOXORUBICIN [Concomitant]
     Active Substance: DOXORUBICIN
     Indication: MANTLE CELL LYMPHOMA
     Route: 065
     Dates: start: 20170413, end: 20170811
  4. LENALIDOMIDE [Suspect]
     Active Substance: LENALIDOMIDE
     Indication: MANTLE CELL LYMPHOMA
     Dosage: LAST ADMINISTRATION BEFORE SAE ONSET: 03/APR/2019
     Route: 065
     Dates: start: 20170926
  5. RITUXIMAB. [Suspect]
     Active Substance: RITUXIMAB
     Indication: MANTLE CELL LYMPHOMA
     Route: 042
     Dates: start: 20170413, end: 20170811
  6. PREDNISONE. [Concomitant]
     Active Substance: PREDNISONE
     Indication: MANTLE CELL LYMPHOMA
     Route: 065
     Dates: start: 20170413, end: 20170811
  7. RITUXIMAB. [Suspect]
     Active Substance: RITUXIMAB
     Indication: MANTLE CELL LYMPHOMA
     Dosage: CYCLE 1 DAY 1, LAST DOSE PRIOR SAE 14/FEB/2019
     Route: 058
     Dates: start: 20170926
  8. VINCRISTINE [Concomitant]
     Active Substance: VINCRISTINE
     Indication: MANTLE CELL LYMPHOMA
     Route: 065
     Dates: start: 20170413, end: 20170811
  9. CYCLOPHOSPHAMIDE. [Concomitant]
     Active Substance: CYCLOPHOSPHAMIDE
     Indication: MANTLE CELL LYMPHOMA
     Route: 065
     Dates: start: 20170413, end: 20170811
  10. LENALIDOMIDE [Suspect]
     Active Substance: LENALIDOMIDE
     Route: 065
     Dates: start: 20180510

REACTIONS (5)
  - Haemarthrosis [Recovered/Resolved with Sequelae]
  - Knee operation [Recovered/Resolved with Sequelae]
  - Knee arthroplasty [Not Recovered/Not Resolved]
  - Haemarthrosis [Recovered/Resolved with Sequelae]
  - Lung infection [Recovered/Resolved]

NARRATIVE: CASE EVENT DATE: 20180410
